FAERS Safety Report 6844080-2 (Version None)
Quarter: 2010Q3

REPORT INFORMATION
  Report Type: 
  Country: None (occurrence: None)
  Receive Date: 20100715
  Receipt Date: 20100708
  Transmission Date: 20110219
  Serious: Yes (Other)
  Sender: FDA-Public Use
  Company Number: BR-PFIZER INC-2009302555

PATIENT
  Age: 28 Year
  Sex: Female
  Weight: 69 kg

DRUGS (3)
  1. DEPO-PROVERA [Suspect]
     Indication: CONTRACEPTION
     Dosage: 150 MG, EVERY 3 MONTHS
     Route: 030
     Dates: start: 19980101
  2. PANTOPRAZOLE [Concomitant]
     Dosage: UNK
  3. OMEPRAZOLE [Concomitant]
     Indication: GASTRITIS
     Dosage: UNK

REACTIONS (2)
  - AMENORRHOEA [None]
  - CHOLECYSTECTOMY [None]
